FAERS Safety Report 8298811-8 (Version None)
Quarter: 2012Q2

REPORT INFORMATION
  Report Type: 
  Country: None (occurrence: None)
  Receive Date: 20120419
  Receipt Date: 20120411
  Transmission Date: 20120825
  Serious: Yes (Disabling, Other)
  Sender: FDA-Public Use
  Company Number: JP-FRI-1000028742

PATIENT
  Sex: Female
  Weight: 37 kg

DRUGS (10)
  1. MEMANTINE HCL [Suspect]
     Indication: DEMENTIA ALZHEIMER'S TYPE
     Dosage: 5 MG
     Dates: start: 20111124, end: 20111207
  2. MEMANTINE HCL [Suspect]
     Dosage: 20 MG
     Route: 048
     Dates: start: 20120105, end: 20120211
  3. TIARYL [Concomitant]
     Indication: PSYCHIATRIC SYMPTOM
     Dosage: 75 MG
     Route: 048
  4. KAMA [Concomitant]
     Indication: CONSTIPATION
     Dosage: 3 G
     Route: 048
  5. MEMANTINE HCL [Suspect]
     Dosage: 10 MG
     Dates: start: 20111208, end: 20111221
  6. DEPAKENE [Concomitant]
     Dosage: 600 MG
     Route: 048
  7. MICARDIS [Concomitant]
     Indication: HYPERTENSION
     Dosage: 20 MG
     Route: 048
     Dates: start: 20110201
  8. NEXIUM [Concomitant]
     Dosage: 20 MG
     Route: 048
  9. MEMANTINE HCL [Suspect]
     Dosage: 15 MG
     Dates: start: 20111222, end: 20120104
  10. PROPIVERINE [Suspect]
     Indication: POLLAKIURIA
     Dosage: 20 MG
     Route: 048

REACTIONS (3)
  - DYSKINESIA [None]
  - TOOTH INJURY [None]
  - TRISMUS [None]
